FAERS Safety Report 10214616 (Version 1)
Quarter: 2014Q2

REPORT INFORMATION
  Report Type: Spontaneous
  Country: CN (occurrence: CN)
  Receive Date: 20140603
  Receipt Date: 20140603
  Transmission Date: 20141212
  Serious: Yes (Other)
  Sender: FDA-Public Use
  Company Number: CN-GLAXOSMITHKLINE-B0999146A

PATIENT
  Sex: Female
  Weight: 50 kg

DRUGS (2)
  1. HEPTODIN [Suspect]
     Indication: CHRONIC HEPATITIS B
     Dosage: .1G PER DAY
     Dates: start: 20130805, end: 20130921
  2. CYCLOPHOSPHAMIDE [Suspect]
     Dosage: .2G PER DAY
     Route: 042
     Dates: start: 20130807, end: 20130910

REACTIONS (1)
  - Bone marrow failure [Recovering/Resolving]
